FAERS Safety Report 7563984-9 (Version None)
Quarter: 2011Q2

REPORT INFORMATION
  Report Type: 
  Country: None (occurrence: None)
  Receive Date: 20110622
  Receipt Date: 20110614
  Transmission Date: 20111010
  Serious: Yes (Death, Other)
  Sender: FDA-Public Use
  Company Number: US-ROCHE-783249

PATIENT
  Sex: Male

DRUGS (1)
  1. ACCUTANE [Suspect]
     Dosage: START DATE BETWEEN: 89-93
     Route: 065

REACTIONS (2)
  - IRRITABLE BOWEL SYNDROME [None]
  - TOXIC EPIDERMAL NECROLYSIS [None]
